FAERS Safety Report 5629970-0 (Version None)
Quarter: 2008Q1

REPORT INFORMATION
  Report Type: 
  Country: None (occurrence: None)
  Receive Date: 20080218
  Receipt Date: 20080207
  Transmission Date: 20080703
  Serious: Yes (Other)
  Sender: FDA-Public Use
  Company Number: IE-ELI_LILLY_AND_COMPANY-IE200802002026

PATIENT
  Age: 8 Year
  Sex: Male

DRUGS (2)
  1. STRATTERA [Suspect]
     Dosage: 25 MG, UNKNOWN
     Route: 065
     Dates: start: 20070601
  2. MELATONIN [Concomitant]
     Indication: SLEEP DISORDER
     Dosage: UNK, EVERY NIGHT
     Route: 065

REACTIONS (1)
  - HEART RATE IRREGULAR [None]
